FAERS Safety Report 25791290 (Version 1)
Quarter: 2025Q3

REPORT INFORMATION
  Report Type: Spontaneous
  Country: US (occurrence: US)
  Receive Date: 20250911
  Receipt Date: 20250911
  Transmission Date: 20251020
  Serious: Yes (Death, Other)
  Sender: HIKMA
  Company Number: US-HIKMA PHARMACEUTICALS USA INC.-US-H14001-25-10023

PATIENT
  Sex: Male

DRUGS (3)
  1. AMBIEN [Suspect]
     Active Substance: ZOLPIDEM TARTRATE
     Indication: Anxiety
     Route: 065
  2. LORAZEPAM [Suspect]
     Active Substance: LORAZEPAM
     Indication: Anxiety
     Route: 065
  3. MORPHINE [Suspect]
     Active Substance: MORPHINE
     Indication: Anxiety
     Route: 065

REACTIONS (3)
  - Death [Fatal]
  - Toxicity to various agents [Fatal]
  - Off label use [Unknown]
